FAERS Safety Report 6219365-3 (Version None)
Quarter: 2009Q2

REPORT INFORMATION
  Report Type: 
  Country: None (occurrence: None)
  Receive Date: 20090605
  Receipt Date: 20090605
  Transmission Date: 20091009
  Serious: Yes (Hospitalization, Disabling)
  Sender: FDA-Public Use
  Company Number: None

PATIENT
  Age: 78 Year
  Sex: Female
  Weight: 73 kg

DRUGS (15)
  1. PHENYTOIN [Suspect]
     Dosage: 100 MG Q8H IV
     Route: 042
  2. LASIX [Concomitant]
  3. POTASSIUM CHLORIDE [Concomitant]
  4. ISOSORBIDE [Concomitant]
  5. NITROGYLCERIN [Concomitant]
  6. LEVOXYL [Concomitant]
  7. TOPROL-XL [Concomitant]
  8. LIPITOR [Concomitant]
  9. GLIPIZIDE [Concomitant]
  10. DILANTIN [Concomitant]
  11. COUMADIN [Concomitant]
  12. DETROL [Concomitant]
  13. CALAN [Concomitant]
  14. RESTORIL [Concomitant]
  15. HUMULIN R [Concomitant]

REACTIONS (5)
  - ECCHYMOSIS [None]
  - HAEMATEMESIS [None]
  - HAEMOGLOBIN DECREASED [None]
  - INTERNATIONAL NORMALISED RATIO INCREASED [None]
  - PURPLE GLOVE SYNDROME [None]
